FAERS Safety Report 18445725 (Version 2)
Quarter: 2020Q4

REPORT INFORMATION
  Report Type: Report from Study
  Country: FR (occurrence: FR)
  Receive Date: 20201030
  Receipt Date: 20201105
  Transmission Date: 20210114
  Serious: No
  Sender: FDA-Public Use
  Company Number: FR-JNJFOC-20131215331

PATIENT
  Age: 12 Year
  Sex: Female

DRUGS (6)
  1. REMICADE [Suspect]
     Active Substance: INFLIXIMAB
     Route: 042
     Dates: start: 20130320, end: 20151209
  2. REMICADE [Suspect]
     Active Substance: INFLIXIMAB
     Route: 042
     Dates: start: 20130320, end: 20140326
  3. REMICADE [Suspect]
     Active Substance: INFLIXIMAB
     Route: 042
     Dates: end: 20150916
  4. REMICADE [Suspect]
     Active Substance: INFLIXIMAB
     Route: 042
     Dates: end: 20150313
  5. REMICADE [Suspect]
     Active Substance: INFLIXIMAB
     Indication: CROHN^S DISEASE
     Route: 042
     Dates: start: 20111024, end: 20130220
  6. REMICADE [Suspect]
     Active Substance: INFLIXIMAB
     Route: 042
     Dates: end: 20141001

REACTIONS (14)
  - Haemorrhagic ovarian cyst [Unknown]
  - Gingivitis [Recovered/Resolved]
  - Headache [Unknown]
  - Fistula [Unknown]
  - Chalazion [Recovered/Resolved]
  - Hepatocellular injury [Unknown]
  - Noninfective gingivitis [Unknown]
  - Cough [Unknown]
  - Vision blurred [Unknown]
  - Rhinitis [Unknown]
  - Arthralgia [Unknown]
  - Abdominal pain [Unknown]
  - Arthralgia [Unknown]
  - Haemorrhoids [Unknown]

NARRATIVE: CASE EVENT DATE: 20120807
